FAERS Safety Report 24331660 (Version 1)
Quarter: 2024Q3

REPORT INFORMATION
  Report Type: Spontaneous
  Country: PK (occurrence: PK)
  Receive Date: 20240918
  Receipt Date: 20240918
  Transmission Date: 20241016
  Serious: Yes (Other)
  Sender: RANBAXY
  Company Number: PK-SUN PHARMACEUTICAL INDUSTRIES LTD-2024RR-468272

PATIENT
  Age: 43 Year
  Sex: Female

DRUGS (3)
  1. OMEPRAZOLE [Suspect]
     Active Substance: OMEPRAZOLE
     Indication: Rheumatoid arthritis
     Dosage: 40 MILLIGRAM ONCE A DAY FOR A DECADE
     Route: 048
  2. PREDNISONE [Suspect]
     Active Substance: PREDNISONE
     Indication: Rheumatoid arthritis
     Dosage: 10 MILLIGRAM, DAILY
     Route: 048
  3. DICLOFENAC [Concomitant]
     Active Substance: DICLOFENAC
     Indication: Rheumatoid arthritis
     Dosage: 50 MILLIGRAM TWICE A DAY
     Route: 048

REACTIONS (3)
  - Hypomagnesaemia [Unknown]
  - Hyperreflexia [Unknown]
  - Muscle contractions involuntary [Unknown]
